FAERS Safety Report 7837345-9 (Version None)
Quarter: 2011Q4

REPORT INFORMATION
  Report Type: 
  Country: None (occurrence: None)
  Receive Date: 20111024
  Receipt Date: 20110117
  Transmission Date: 20120403
  Serious: No
  Sender: FDA-Public Use
  Company Number: US-ABBOTT-11P-163-0699596-00

PATIENT
  Sex: Female
  Weight: 59.02 kg

DRUGS (5)
  1. DECADRON [Concomitant]
     Indication: BIPOLAR DISORDER
  2. LUPRON DEPOT [Suspect]
     Indication: ENDOMETRIOSIS
     Dates: start: 20101220
  3. PERCOCET [Concomitant]
     Indication: PRODUCT USED FOR UNKNOWN INDICATION
  4. XANAX [Concomitant]
     Indication: PANIC ATTACK
  5. NICOTINE [Concomitant]
     Indication: PRODUCT USED FOR UNKNOWN INDICATION
     Dates: start: 20110117

REACTIONS (2)
  - ABDOMINAL PAIN [None]
  - WEIGHT INCREASED [None]
